FAERS Safety Report 6366594-4 (Version None)
Quarter: 2009Q3

REPORT INFORMATION
  Report Type: 
  Country: None (occurrence: None)
  Receive Date: 20090921
  Receipt Date: 20090911
  Transmission Date: 20100115
  Serious: Yes (Hospitalization)
  Sender: FDA-Public Use
  Company Number: US-BAYER-200924509NA

PATIENT
  Age: 52 Year
  Sex: Male
  Weight: 83 kg

DRUGS (17)
  1. NEXAVAR [Suspect]
     Indication: HEPATIC NEOPLASM MALIGNANT
     Dosage: TOTAL DAILY DOSE: 400 MG  UNIT DOSE: 200 MG
     Route: 048
     Dates: start: 20090409, end: 20090412
  2. NEXAVAR [Suspect]
     Dosage: TOTAL DAILY DOSE: 400 MG  UNIT DOSE: 200 MG
     Route: 048
     Dates: start: 20090429, end: 20090524
  3. NEXAVAR [Suspect]
     Dosage: TOTAL DAILY DOSE: 800 MG  UNIT DOSE: 200 MG
     Route: 048
     Dates: start: 20090525, end: 20090613
  4. NEXAVAR [Suspect]
     Dosage: TOTAL DAILY DOSE: 800 MG  UNIT DOSE: 200 MG
     Route: 048
     Dates: start: 20090325, end: 20090408
  5. NEXAVAR [Suspect]
     Dosage: TOTAL DAILY DOSE: 200 MG  UNIT DOSE: 200 MG
     Route: 048
     Dates: start: 20090421, end: 20090428
  6. HYDROCODONE [Concomitant]
     Indication: PAIN MANAGEMENT
     Dosage: AS USED: 5/700 MG
     Dates: start: 20080101, end: 20090618
  7. HYDROCODONE [Concomitant]
     Dosage: AS USED: 5/700 MG
  8. GLIPIZIDE [Concomitant]
     Indication: TYPE 2 DIABETES MELLITUS
     Route: 048
  9. GLIPIZIDE [Concomitant]
     Route: 048
     Dates: start: 20060101, end: 20090618
  10. PROMETHAZINE [Concomitant]
     Indication: NAUSEA
     Route: 048
  11. PROMETHAZINE [Concomitant]
     Route: 048
     Dates: start: 20090425, end: 20090618
  12. CIPROFLAXACIN [Concomitant]
     Indication: PROPHYLAXIS
     Route: 048
     Dates: start: 20080101, end: 20090618
  13. CIPROFLAXACIN [Concomitant]
     Route: 048
  14. LACTULOSE [Concomitant]
     Indication: CONFUSIONAL STATE
     Route: 048
     Dates: start: 20090409
  15. NEXIUM [Concomitant]
     Indication: GASTROOESOPHAGEAL REFLUX DISEASE
     Route: 048
     Dates: start: 20090101, end: 20090618
  16. NEXIUM [Concomitant]
     Route: 048
  17. PROPRANOLOL [Concomitant]
     Indication: VARICES OESOPHAGEAL
     Route: 048
     Dates: start: 20090618

REACTIONS (5)
  - ASTHENIA [None]
  - CONFUSIONAL STATE [None]
  - HUMERUS FRACTURE [None]
  - METASTASES TO BONE [None]
  - NAUSEA [None]
